FAERS Safety Report 16945994 (Version 1)
Quarter: 2019Q4

REPORT INFORMATION
  Report Type: Report from Study
  Country: None (occurrence: ZA)
  Receive Date: 20191022
  Receipt Date: 20191022
  Transmission Date: 20200122
  Serious: Yes (Hospitalization)
  Sender: FDA-Public Use
  Company Number: ZA-ABBVIE-19K-143-2970934-00

PATIENT
  Sex: Female

DRUGS (1)
  1. HUMIRA [Suspect]
     Active Substance: ADALIMUMAB
     Indication: CROHN^S DISEASE
     Route: 058
     Dates: start: 2015, end: 201909

REACTIONS (4)
  - Malnutrition [Recovering/Resolving]
  - Drug hypersensitivity [Recovering/Resolving]
  - Dermatitis allergic [Recovering/Resolving]
  - Colostomy [Unknown]

NARRATIVE: CASE EVENT DATE: 2019
